FAERS Safety Report 13710844 (Version 1)
Quarter: 2017Q3

REPORT INFORMATION
  Report Type: Spontaneous
  Country: US (occurrence: US)
  Receive Date: 20170701
  Receipt Date: 20170701
  Transmission Date: 20171127
  Serious: Yes (Hospitalization)
  Sender: FDA-Public Use
  Company Number: None

PATIENT
  Age: 69 Year
  Sex: Male
  Weight: 97.4 kg

DRUGS (5)
  1. RITUXIMAB (MOAB C2B8 ANTI CD20, CHIMERIC) [Suspect]
     Active Substance: RITUXIMAB
     Dates: end: 20161003
  2. PREDNISONE. [Suspect]
     Active Substance: PREDNISONE
     Dates: end: 20161003
  3. VINCRISTINE SULFATE. [Suspect]
     Active Substance: VINCRISTINE SULFATE
     Dates: end: 20161003
  4. DOXORUBICIN HYDROCHLORIDE. [Suspect]
     Active Substance: DOXORUBICIN HYDROCHLORIDE
     Dates: end: 20161003
  5. CYCLOPHOSPHAMIDE. [Suspect]
     Active Substance: CYCLOPHOSPHAMIDE
     Dates: end: 20161003

REACTIONS (9)
  - Neutrophil count decreased [None]
  - Blood magnesium decreased [None]
  - White blood cell count decreased [None]
  - Chills [None]
  - Nasopharyngitis [None]
  - Tremor [None]
  - Pyrexia [None]
  - Cough [None]
  - Anaemia [None]

NARRATIVE: CASE EVENT DATE: 20161012
